FAERS Safety Report 22354361 (Version 1)
Quarter: 2023Q2

REPORT INFORMATION
  Report Type: Spontaneous
  Country: US (occurrence: US)
  Receive Date: 20230523
  Receipt Date: 20230523
  Transmission Date: 20230721
  Serious: Yes (Other)
  Sender: FDA-Public Use
  Company Number: US-BAYER-2023A067676

PATIENT
  Age: 56 Year
  Sex: Female

DRUGS (8)
  1. ASPIRIN [Suspect]
     Active Substance: ASPIRIN
  2. SEVELAMER [Suspect]
     Active Substance: SEVELAMER
  3. AMIODARONE [Concomitant]
     Active Substance: AMIODARONE
  4. AROMASIN [Concomitant]
     Active Substance: EXEMESTANE
  5. CARVEDILOL [Concomitant]
     Active Substance: CARVEDILOL
  6. DILTIAZEM [Concomitant]
     Active Substance: DILTIAZEM
  7. PANTOPRAZOLE [Concomitant]
     Active Substance: PANTOPRAZOLE
  8. CINACALCET [Concomitant]
     Active Substance: CINACALCET

REACTIONS (7)
  - Large intestinal haemorrhage [None]
  - Large intestinal ulcer [None]
  - Gastrointestinal haemorrhage [None]
  - Syncope [None]
  - Dizziness [None]
  - Dyspnoea [None]
  - Contraindicated product administered [None]
